FAERS Safety Report 6054109-X (Version None)
Quarter: 2009Q1

REPORT INFORMATION
  Report Type: 
  Country: None (occurrence: None)
  Receive Date: 20090127
  Receipt Date: 20090119
  Transmission Date: 20090719
  Serious: Yes (Other)
  Sender: FDA-Public Use
  Company Number: GB-AVENTIS-200910245EU

PATIENT
  Sex: Female
  Weight: 71 kg

DRUGS (3)
  1. ALUMINIUM OH GEL, DRIED/MAGNESIUM TRISILICATE [Suspect]
     Dosage: DOSE: UNK
     Route: 048
     Dates: start: 20081224, end: 20081224
  2. RAMIPRIL [Concomitant]
     Dosage: DOSE: UNK
  3. ATENOLOL [Concomitant]
     Dosage: DOSE: UNK

REACTIONS (2)
  - DIZZINESS [None]
  - MALAISE [None]
